FAERS Safety Report 19010115 (Version 1)
Quarter: 2021Q1

REPORT INFORMATION
  Report Type: Spontaneous
  Country: CA (occurrence: CA)
  Receive Date: 20210316
  Receipt Date: 20210316
  Transmission Date: 20210420
  Serious: Yes (Life-Threatening, Hospitalization)
  Sender: FDA-Public Use
  Company Number: ALC2021CA001871

PATIENT
  Age: 4 Year
  Sex: Male

DRUGS (17)
  1. ALBUMIN (HUMAN) [Suspect]
     Active Substance: ALBUMIN HUMAN
     Indication: HAEMODYNAMIC INSTABILITY
     Route: 065
  2. ALBUMIN (HUMAN) [Suspect]
     Active Substance: ALBUMIN HUMAN
     Indication: BUDD-CHIARI SYNDROME
     Dosage: UNK
     Route: 042
  3. PHENYLEPHRINE HCL 2.5 % [Suspect]
     Active Substance: PHENYLEPHRINE HYDROCHLORIDE
     Indication: HAEMODYNAMIC INSTABILITY
     Route: 065
  4. PHENYLEPHRINE HYDROCHLORIDE. [Suspect]
     Active Substance: PHENYLEPHRINE HYDROCHLORIDE
     Indication: HAEMODYNAMIC INSTABILITY
     Route: 065
  5. HEPARIN [Suspect]
     Active Substance: HEPARIN SODIUM
     Indication: ANTICOAGULANT THERAPY
     Dosage: 1300.0 IU
     Route: 065
  6. NORMAL SALINE [Suspect]
     Active Substance: SODIUM CHLORIDE
     Indication: BUDD-CHIARI SYNDROME
     Dosage: UNK
     Route: 065
  7. SODIUM BICARBONATE. [Suspect]
     Active Substance: SODIUM BICARBONATE
     Indication: BUDD-CHIARI SYNDROME
     Dosage: UNK
     Route: 042
  8. EPINEPHRINE. [Suspect]
     Active Substance: EPINEPHRINE
     Indication: BUDD-CHIARI SYNDROME
     Dosage: UNK
     Route: 065
  9. HEPARIN [Suspect]
     Active Substance: HEPARIN SODIUM
     Indication: HAEMODYNAMIC INSTABILITY
     Dosage: UNK
     Route: 065
  10. EPINEPHRINE. [Suspect]
     Active Substance: EPINEPHRINE
     Indication: HAEMODYNAMIC INSTABILITY
     Route: 065
  11. PHENYLEPHRINE HYDROCHLORIDE. [Suspect]
     Active Substance: PHENYLEPHRINE HYDROCHLORIDE
     Indication: BUDD-CHIARI SYNDROME
  12. HEPARIN [Suspect]
     Active Substance: HEPARIN SODIUM
     Indication: HEPATIC VEIN THROMBOSIS
     Route: 065
  13. PHENYLEPHRINE HCL 2.5 % [Suspect]
     Active Substance: PHENYLEPHRINE HYDROCHLORIDE
     Indication: BUDD-CHIARI SYNDROME
  14. HEPARIN [Suspect]
     Active Substance: HEPARIN SODIUM
     Indication: BUDD-CHIARI SYNDROME
     Dosage: UNK
     Route: 065
  15. SODIUM BICARBONATE. [Suspect]
     Active Substance: SODIUM BICARBONATE
     Indication: HAEMODYNAMIC INSTABILITY
     Route: 065
  16. NORMAL SALINE [Suspect]
     Active Substance: SODIUM CHLORIDE
     Indication: HAEMODYNAMIC INSTABILITY
     Dosage: UNK
     Route: 042
  17. ENOXAPARIN [Concomitant]
     Active Substance: ENOXAPARIN
     Indication: ANTICOAGULANT THERAPY
     Route: 065

REACTIONS (1)
  - Therapy non-responder [Unknown]
